FAERS Safety Report 5730512-X (Version None)
Quarter: 2008Q2

REPORT INFORMATION
  Report Type: 
  Country: None (occurrence: None)
  Receive Date: 20080507
  Receipt Date: 20080212
  Transmission Date: 20081010
  Serious: Yes (Other)
  Sender: FDA-Public Use
  Company Number: JP-AVENTIS-200813991GDDC

PATIENT
  Age: 47 Year
  Sex: Male

DRUGS (1)
  1. RIFAMPICIN [Suspect]

REACTIONS (1)
  - INTESTINAL OBSTRUCTION [None]
